FAERS Safety Report 22057918 (Version 1)
Quarter: 2023Q1

REPORT INFORMATION
  Report Type: Spontaneous
  Country: US (occurrence: US)
  Receive Date: 20230303
  Receipt Date: 20230303
  Transmission Date: 20230418
  Serious: Yes (Other)
  Sender: FDA-Public Use
  Company Number: US-AUROBINDO-AUR-APL-2023-009429

PATIENT
  Age: 80 Year
  Sex: Female

DRUGS (7)
  1. AZACITIDINE [Suspect]
     Active Substance: AZACITIDINE
     Indication: Myelodysplastic syndrome
     Dosage: UNK
     Route: 042
  2. AMLODIPINE [Concomitant]
     Active Substance: AMLODIPINE BESYLATE
     Indication: Hypertension
     Dosage: UNK
     Route: 065
  3. HYDROCHLOROTHIAZIDE [Concomitant]
     Active Substance: HYDROCHLOROTHIAZIDE
     Indication: Hypertension
     Dosage: UNK
     Route: 065
  4. ATORVASTATIN [Concomitant]
     Active Substance: ATORVASTATIN
     Indication: Dyslipidaemia
     Dosage: UNK
     Route: 065
  5. FLUCONAZOLE [Concomitant]
     Active Substance: FLUCONAZOLE
     Indication: Candida infection
     Dosage: UNK
     Route: 065
  6. DOXYCYCLINE [Concomitant]
     Active Substance: DOXYCYCLINE
     Indication: Illness
     Dosage: UNK
     Route: 065
  7. FUROSEMIDE [Concomitant]
     Active Substance: FUROSEMIDE
     Indication: Pulmonary oedema
     Dosage: UNK
     Route: 065

REACTIONS (1)
  - Drug ineffective [Unknown]
